FAERS Safety Report 15572682 (Version 3)
Quarter: 2018Q4

REPORT INFORMATION
  Report Type: Spontaneous
  Country: BR (occurrence: BR)
  Receive Date: 20181031
  Receipt Date: 20181120
  Transmission Date: 20190205
  Serious: Yes (Death, Life-Threatening, Hospitalization)
  Sender: FDA-Public Use
  Company Number: BR-GEHC-2018CSU004295

PATIENT

DRUGS (7)
  1. VALSARTAN. [Concomitant]
     Active Substance: VALSARTAN
     Indication: PRODUCT USED FOR UNKNOWN INDICATION
     Dosage: 320 MG, UNK
     Route: 065
  2. SPIRONOLACTONE. [Concomitant]
     Active Substance: SPIRONOLACTONE
     Indication: PRODUCT USED FOR UNKNOWN INDICATION
     Dosage: 75 MG, UNK
     Route: 065
  3. METICORTEN [Concomitant]
     Active Substance: PREDNISONE
     Indication: PRODUCT USED FOR UNKNOWN INDICATION
     Dosage: 20 MG, UNK
     Route: 048
     Dates: start: 20181016, end: 20181017
  4. ANGIPRESS                          /00422901/ [Concomitant]
     Dosage: 25 MG, UNK
  5. OMNIPAQUE [Suspect]
     Active Substance: IOHEXOL
     Indication: RENAL NEOPLASM
     Dosage: 110 ML, SINGLE
     Route: 042
     Dates: start: 20181017, end: 20181017
  6. ANGIPRESS                          /00422901/ [Concomitant]
     Dosage: 100 MG, UNK
  7. HISTADIN D                         /01202601/ [Concomitant]
     Indication: PRODUCT USED FOR UNKNOWN INDICATION
     Dosage: UNK
     Route: 048
     Dates: start: 20181016, end: 20181017

REACTIONS (6)
  - Agitation [Fatal]
  - Vomiting [Fatal]
  - Depressed level of consciousness [Fatal]
  - Cyanosis [Fatal]
  - Dyspnoea [Fatal]
  - Cardio-respiratory arrest [Fatal]

NARRATIVE: CASE EVENT DATE: 20181017
